FAERS Safety Report 10563688 (Version 1)
Quarter: 2014Q4

REPORT INFORMATION
  Report Type: Spontaneous
  Country: US (occurrence: None)
  Receive Date: 20141103
  Receipt Date: 20141103
  Transmission Date: 20150529
  Serious: Yes (Other)
  Sender: FDA-Public Use
  Company Number: None

PATIENT
  Age: 55 Year
  Sex: Male
  Weight: 95.26 kg

DRUGS (1)
  1. QUETIAPINE FUMARATE. [Suspect]
     Active Substance: QUETIAPINE FUMARATE
     Indication: ANXIETY
     Dosage: 1 TABLET ONCE DAILY TAKEN BY MOUTH
     Route: 048
     Dates: start: 20140525, end: 20141022

REACTIONS (8)
  - Anxiety [None]
  - Depressed mood [None]
  - Insomnia [None]
  - Disease recurrence [None]
  - Psychomotor hyperactivity [None]
  - Product quality issue [None]
  - Product substitution issue [None]
  - Irritability [None]
